FAERS Safety Report 11066732 (Version 2)
Quarter: 2015Q2

REPORT INFORMATION
  Report Type: Spontaneous
  Country: US (occurrence: US)
  Receive Date: 20150425
  Receipt Date: 20150525
  Transmission Date: 20150821
  Serious: No
  Sender: FDA-Public Use
  Company Number: US-JNJFOC-20130504081

PATIENT
  Sex: Female
  Weight: 99.79 kg

DRUGS (5)
  1. REMICADE [Suspect]
     Active Substance: INFLIXIMAB
     Indication: PUSTULAR PSORIASIS
     Route: 042
     Dates: start: 2006, end: 2007
  2. REMICADE [Suspect]
     Active Substance: INFLIXIMAB
     Indication: GUTTATE PSORIASIS
     Route: 042
     Dates: start: 2006, end: 2007
  3. REMICADE [Suspect]
     Active Substance: INFLIXIMAB
     Indication: PSORIASIS
     Route: 042
     Dates: start: 2006, end: 2007
  4. PROVERA [Concomitant]
     Active Substance: MEDROXYPROGESTERONE ACETATE
     Indication: MENOPAUSE
     Route: 048
  5. REMICADE [Suspect]
     Active Substance: INFLIXIMAB
     Indication: ERYTHRODERMIC PSORIASIS
     Route: 042
     Dates: start: 2006, end: 2007

REACTIONS (1)
  - Drug ineffective [Unknown]

NARRATIVE: CASE EVENT DATE: 2006
